FAERS Safety Report 20929338 (Version 3)
Quarter: 2022Q2

REPORT INFORMATION
  Report Type: Spontaneous
  Country: US (occurrence: US)
  Receive Date: 20220608
  Receipt Date: 20220627
  Transmission Date: 20220720
  Serious: No
  Sender: FDA-Public Use
  Company Number: US-AMGEN-USASP2022094418

PATIENT
  Age: 83 Year
  Sex: Female
  Weight: 62.132 kg

DRUGS (40)
  1. PROLIA [Suspect]
     Active Substance: DENOSUMAB
     Indication: Osteoporosis postmenopausal
     Dosage: 60 MILLIGRAM, Q6MO
     Route: 058
     Dates: start: 20160204, end: 201902
  2. PROLIA [Suspect]
     Active Substance: DENOSUMAB
     Indication: Osteopenia
  3. CITALOPRAM [Concomitant]
     Active Substance: CITALOPRAM HYDROBROMIDE
     Indication: Product used for unknown indication
     Route: 065
  4. CITALOPRAM [Concomitant]
     Active Substance: CITALOPRAM HYDROBROMIDE
     Route: 065
  5. CITALOPRAM [Concomitant]
     Active Substance: CITALOPRAM HYDROBROMIDE
     Route: 065
  6. CITALOPRAM [Concomitant]
     Active Substance: CITALOPRAM HYDROBROMIDE
     Route: 065
  7. CITALOPRAM [Concomitant]
     Active Substance: CITALOPRAM HYDROBROMIDE
     Route: 065
  8. CITALOPRAM [Concomitant]
     Active Substance: CITALOPRAM HYDROBROMIDE
     Route: 065
  9. MOBIC [Concomitant]
     Active Substance: MELOXICAM
     Indication: Product used for unknown indication
     Route: 065
  10. MOBIC [Concomitant]
     Active Substance: MELOXICAM
     Route: 065
  11. OMEPRAZOLE [Concomitant]
     Active Substance: OMEPRAZOLE
     Indication: Gastrooesophageal reflux disease
     Dosage: 20 MILLIGRAM, QD
     Route: 048
     Dates: start: 20220427
  12. TRAZODONE HCL [Concomitant]
     Active Substance: TRAZODONE HYDROCHLORIDE
     Indication: Insomnia
     Dosage: 100 MILLIGRAM
     Route: 048
  13. CALCIUM\CHOLECALCIFEROL [Concomitant]
     Active Substance: CALCIUM\CHOLECALCIFEROL
     Dosage: UNK UNK, QD
     Route: 048
     Dates: end: 20211123
  14. PREDNISONE [Concomitant]
     Active Substance: PREDNISONE
     Dosage: 5 MILLIGRAM
     Route: 048
  15. MELOXICAM [Concomitant]
     Active Substance: MELOXICAM
     Dosage: 7.5 MILLIGRAM
     Route: 048
  16. MINERALS\VITAMINS [Concomitant]
     Active Substance: MINERALS\VITAMINS
  17. BACTROBAN [Concomitant]
     Active Substance: MUPIROCIN\MUPIROCIN CALCIUM
     Indication: Nasal inflammation
     Dosage: UNK UNK, BID
     Route: 048
  18. MUPIROCIN [Concomitant]
     Active Substance: MUPIROCIN
  19. SYMBICORT [Concomitant]
     Active Substance: BUDESONIDE\FORMOTEROL FUMARATE DIHYDRATE
     Indication: Cough
     Dosage: UNK
     Dates: start: 20150330
  20. ZYRTEC [Concomitant]
     Active Substance: CETIRIZINE HYDROCHLORIDE
     Indication: Cough
     Dosage: 10 UNK
     Route: 048
     Dates: start: 20150330
  21. CIPROFLOXACIN [Concomitant]
     Active Substance: CIPROFLOXACIN
     Indication: Urinary tract infection
     Dosage: 500 MILLIGRAM ONE TABLET TWO TIMES A DAILY
     Route: 048
  22. TRAMADOL HCL [Concomitant]
     Active Substance: TRAMADOL HYDROCHLORIDE
     Indication: Osteoarthritis
     Dosage: 50 MILLIGRAM, QD
     Route: 048
     Dates: start: 20151016
  23. ZITHROMAX [Concomitant]
     Active Substance: AZITHROMYCIN DIHYDRATE
     Indication: Cough
     Dosage: UNK
     Dates: start: 20200712
  24. MEDROL [Concomitant]
     Active Substance: METHYLPREDNISOLONE
     Indication: Urticaria
     Dosage: 4 MILLIGRAM
     Route: 048
     Dates: start: 20210610
  25. ACETAMINOPHEN\TRAMADOL [Concomitant]
     Active Substance: ACETAMINOPHEN\TRAMADOL
     Indication: Fibromyalgia
     Dosage: 37.5 MILLIGRAM, QD
     Route: 048
  26. ACETAMINOPHEN\TRAMADOL [Concomitant]
     Active Substance: ACETAMINOPHEN\TRAMADOL
     Dosage: 32.5 MILLIGRAM, QD
     Route: 048
  27. BENZONATATE [Concomitant]
     Active Substance: BENZONATATE
     Indication: Skin test
     Dosage: 200 MILLIGRAM, ONE TABLET THREE TIMES DAILY
     Dates: start: 20220428
  28. VITAMIN D [Concomitant]
     Active Substance: VITAMIN D NOS
     Dosage: 1000 UNIT ONE TABLET DAILY
     Route: 048
  29. CITALOPRAM HYDROBROMIDE [Concomitant]
     Active Substance: CITALOPRAM HYDROBROMIDE
     Dosage: 20 MILLIGRAM, QD
     Route: 048
     Dates: start: 20220328
  30. ESZOPICLONE [Concomitant]
     Active Substance: ESZOPICLONE
     Indication: Insomnia
     Dosage: 2 MILLIGRAM, QD
     Route: 048
     Dates: start: 20220428
  31. COVID-19 vaccine [Concomitant]
     Dosage: 30 MICROGRAM PER 0.3ML
     Dates: start: 20210127
  32. COVID-19 vaccine [Concomitant]
     Dosage: 30 MICROGRAM PER 0.3ML
     Dates: start: 20210214
  33. COVID-19 vaccine [Concomitant]
     Dosage: 30 MICROGRAM PER 0.3ML
     Dates: start: 202110
  34. INFLUENZA VIRUS VACCINE [Concomitant]
     Active Substance: INFLUENZA VIRUS VACCINE
     Dosage: UNK
     Dates: start: 20160915
  35. INFLUENZA VIRUS VACCINE [Concomitant]
     Active Substance: INFLUENZA VIRUS VACCINE
     Dosage: UNK
     Dates: start: 20160923
  36. INFLUENZA VIRUS VACCINE [Concomitant]
     Active Substance: INFLUENZA VIRUS VACCINE
     Dosage: UNK
     Dates: start: 20181003
  37. INFLUENZA VIRUS VACCINE [Concomitant]
     Active Substance: INFLUENZA VIRUS VACCINE
     Dosage: UNK
     Dates: start: 20200214
  38. INFLUENZA VIRUS VACCINE [Concomitant]
     Active Substance: INFLUENZA VIRUS VACCINE
     Dosage: UNK
     Dates: start: 20201030
  39. INFLUENZA VIRUS VACCINE [Concomitant]
     Active Substance: INFLUENZA VIRUS VACCINE
     Dosage: UNK
     Dates: start: 20211101
  40. PNEUMOCOCCAL VACCINE POLYVALENT NOS [Concomitant]
     Active Substance: PNEUMOCOCCAL VACCINE POLYVALENT

REACTIONS (4)
  - Lichen sclerosus [Unknown]
  - Tooth extraction [Unknown]
  - Incorrect route of product administration [Unknown]
  - Wrong technique in product usage process [Unknown]

NARRATIVE: CASE EVENT DATE: 20210101
